FAERS Safety Report 5248901-9 (Version None)
Quarter: 2007Q1

REPORT INFORMATION
  Report Type: 
  Country: None (occurrence: None)
  Receive Date: 20070228
  Receipt Date: 20070221
  Transmission Date: 20070707
  Serious: Yes (Hospitalization)
  Sender: FDA-Public Use
  Company Number: 2007UW00309

PATIENT
  Age: 48 Year
  Sex: Female

DRUGS (54)
  1. IRESSA [Suspect]
     Indication: SQUAMOUS CELL CARCINOMA OF SKIN
     Route: 048
     Dates: start: 20060928, end: 20070103
  2. NIFEDIPINE [Concomitant]
     Indication: ANGINA PECTORIS
     Route: 048
     Dates: start: 20060201
  3. NIFEDIPINE [Concomitant]
     Indication: HYPERTENSION
     Route: 048
     Dates: start: 20060201
  4. FENTANYL [Concomitant]
     Indication: PAIN
     Route: 062
  5. FENTANYL [Concomitant]
     Route: 062
     Dates: start: 20061102
  6. AMBIEN [Concomitant]
     Indication: INSOMNIA
     Route: 048
     Dates: start: 20030101
  7. REGLAN [Concomitant]
     Indication: ANTIEMETIC SUPPORTIVE CARE
     Route: 048
     Dates: start: 20060901
  8. FLUOXETINE [Concomitant]
     Indication: ANTIDEPRESSANT THERAPY
     Route: 048
     Dates: start: 19980101
  9. FLUOXETINE [Concomitant]
     Route: 048
  10. OMACOR [Concomitant]
     Indication: BLOOD CHOLESTEROL ABNORMAL
     Route: 048
  11. OMACOR [Concomitant]
     Route: 048
     Dates: start: 20060201
  12. SENOKOT [Concomitant]
     Indication: CONSTIPATION
     Dosage: 10 TABLETS DAILY
     Dates: start: 20060927
  13. METOLAZONE [Concomitant]
     Indication: DIURETIC THERAPY
     Route: 048
     Dates: start: 20050901
  14. METOLAZONE [Concomitant]
     Indication: HYPERTENSION
     Route: 048
     Dates: start: 20050901
  15. DEPAKOTE [Concomitant]
     Indication: MOOD ALTERED
     Route: 048
     Dates: start: 20000101
  16. POTASSIUM CHLORIDE [Concomitant]
     Indication: MINERAL SUPPLEMENTATION
     Dates: start: 19980101, end: 20061208
  17. POTASSIUM CHLORIDE [Concomitant]
     Dates: start: 20061210
  18. VYTORIN [Concomitant]
     Indication: LIPIDS ABNORMAL
     Dosage: 10/40 1 TABLET DAILY
     Route: 048
  19. VYTORIN [Concomitant]
     Dosage: 10/80 1 TABLET DAILY
     Route: 048
     Dates: start: 20050401
  20. ZOFRAN [Concomitant]
     Indication: NAUSEA
     Dosage: PRN
     Route: 048
     Dates: start: 20060901
  21. ZOFRAN [Concomitant]
     Indication: VOMITING
     Dosage: PRN
     Route: 048
     Dates: start: 20060901
  22. AMITRIPTYLINE HCL [Concomitant]
     Indication: ANTIDEPRESSANT THERAPY
     Dosage: 25 MG 1-3 TABLETS HS PRN
     Dates: start: 20060901
  23. AMITRIPTYLINE HCL [Concomitant]
     Indication: PAIN
     Dosage: 25 MG 1-3 TABLETS HS PRN
     Dates: start: 20060901
  24. OXYCODONE HCL [Concomitant]
     Indication: PAIN
     Dosage: 3/525 1-2 TABLETS PRN
     Route: 048
  25. OXYCODONE HCL [Concomitant]
     Dosage: 10/625 Q 8 HOURS PRN
     Route: 048
     Dates: start: 20061014
  26. PLAVIX [Concomitant]
     Indication: ANTIPLATELET THERAPY
     Route: 048
     Dates: start: 20050201
  27. NITROSTAT [Concomitant]
     Indication: CHEST PAIN
     Dosage: 0.4 MG 1-3 TABLETS PRN
     Dates: start: 20060201
  28. NEXIUM [Concomitant]
     Indication: THERAPEUTIC PROCEDURE
     Route: 048
     Dates: start: 20050901
  29. LASIX [Concomitant]
     Indication: DIURETIC THERAPY
     Route: 048
     Dates: start: 19980101
  30. ALLEGRA D 24 HOUR [Concomitant]
     Indication: ANTIALLERGIC THERAPY
     Dosage: 1 TABLET BID
     Dates: start: 19980101
  31. CARDIZEM CD [Concomitant]
     Indication: ANGINA PECTORIS
     Route: 048
     Dates: start: 20060201
  32. CARDIZEM CD [Concomitant]
     Indication: HYPERTENSION
     Route: 048
     Dates: start: 20060201
  33. CARDIZEM CD [Concomitant]
  34. CARDIZEM CD [Concomitant]
  35. SPIRONOLACTONE [Concomitant]
     Indication: DIURETIC THERAPY
     Route: 048
     Dates: start: 20060201
  36. XANAX [Concomitant]
     Indication: ANXIETY
     Dosage: PRN
  37. XANAX [Concomitant]
     Indication: TACHYCARDIA
     Dosage: PRN
  38. XANAX [Concomitant]
     Dates: start: 20040101
  39. XANAX [Concomitant]
     Dates: start: 20040101
  40. MAGNESIUM OXIDE [Concomitant]
     Indication: MINERAL SUPPLEMENTATION
     Dates: start: 20060927
  41. MAGNESIUM OXIDE [Concomitant]
     Dates: start: 20060927
  42. ATARAX [Concomitant]
     Indication: PRURITUS
     Dosage: Q 8HRS PRN
     Dates: start: 20061027
  43. CLEOCIN HYDROCHLORIDE [Concomitant]
     Indication: RASH
     Dosage: TID PRN
     Dates: start: 20061031
  44. MILK OF MAGNESIA [Concomitant]
     Indication: CONSTIPATION
     Dates: start: 20060927
  45. MEGACE [Concomitant]
     Indication: DECREASED APPETITE
     Dosage: 40 MG/ML 20ML DAILY
     Dates: start: 20061208
  46. MIRALAX [Concomitant]
     Dosage: 1 DOSE DAILY
  47. AMOXICILLIN [Concomitant]
     Indication: DENTAL DISORDER PROPHYLAXIS
  48. IMDUR [Concomitant]
     Indication: ARTERIOSPASM CORONARY
     Route: 048
  49. MACRODANTIN [Concomitant]
     Route: 048
  50. KEFLEX [Concomitant]
     Indication: INFECTION
  51. ZETIA [Concomitant]
  52. LIDOCAINE-D [Concomitant]
  53. ZAROXOLYN [Concomitant]
     Indication: NAUSEA
  54. ZAROXOLYN [Concomitant]
     Indication: VOMITING

REACTIONS (5)
  - DEHYDRATION [None]
  - DIARRHOEA [None]
  - ELECTROCARDIOGRAM QT PROLONGED [None]
  - HYPOKALAEMIA [None]
  - HYPOMAGNESAEMIA [None]
